FAERS Safety Report 9471396 (Version 1)
Quarter: 2013Q3

REPORT INFORMATION
  Report Type: Spontaneous
  Country: GR (occurrence: None)
  Receive Date: 20130819
  Receipt Date: 20130819
  Transmission Date: 20140515
  Serious: Yes (Death, Hospitalization)
  Sender: FDA-Public Use
  Company Number: SYM-2013-09018

PATIENT
  Age: 71 Year
  Sex: Female

DRUGS (3)
  1. PYRIDOSTIGMINE BROMIDE [Suspect]
     Indication: MYASTHENIA GRAVIS
  2. PREDNISOLONE [Suspect]
     Indication: MYASTHENIA GRAVIS
  3. CARVEDILOL (CARVEDILOL) (CARVEDILOL) [Concomitant]

REACTIONS (15)
  - Myocardial infarction [None]
  - Diarrhoea [None]
  - Abdominal pain [None]
  - Salivary hypersecretion [None]
  - Emotional distress [None]
  - Left ventricular hypertrophy [None]
  - Ventricular hypokinesia [None]
  - Diastolic dysfunction [None]
  - Coronary artery stenosis [None]
  - Thymoma [None]
  - Asthenia [None]
  - Arteriospasm coronary [None]
  - Sudden death [None]
  - Arrhythmia [None]
  - Autoimmune disorder [None]
